FAERS Safety Report 23641681 (Version 2)
Quarter: 2024Q1

REPORT INFORMATION
  Report Type: Spontaneous
  Country: NL (occurrence: NL)
  Receive Date: 20240318
  Receipt Date: 20240327
  Transmission Date: 20240410
  Serious: Yes (Other)
  Sender: FDA-Public Use
  Company Number: NL-ALKEM LABORATORIES LIMITED-NL-ALKEM-2024-04520

PATIENT
  Age: 33 Year
  Sex: Female
  Weight: 56.6 kg

DRUGS (3)
  1. VANCOMYCIN [Suspect]
     Active Substance: VANCOMYCIN
     Indication: Product used for unknown indication
     Dosage: 2000 MILLIGRAM (LOADING DOSE)
     Route: 033
  2. VANCOMYCIN [Suspect]
     Active Substance: VANCOMYCIN
     Dosage: 1000 MILLIGRAM IN 1500 ML PD SOLUTION (50 PERCENT REDUCTION)
     Route: 033
  3. VANCOMYCIN [Suspect]
     Active Substance: VANCOMYCIN
     Dosage: 500 MILLIGRAM, EVERY 2-3 DAYS (50% REDUCED DOSE)
     Route: 033

REACTIONS (1)
  - Vancomycin infusion reaction [Recovered/Resolved]
